FAERS Safety Report 9503843 (Version 1)
Quarter: 2013Q3

REPORT INFORMATION
  Report Type: Spontaneous
  Country: US (occurrence: None)
  Receive Date: 20130905
  Receipt Date: 20130905
  Transmission Date: 20140515
  Serious: Yes (Other)
  Sender: FDA-Public Use
  Company Number: None

PATIENT
  Age: 30 Year
  Sex: Male
  Weight: 73.75 kg

DRUGS (2)
  1. LAMOTRIGINE [Suspect]
     Indication: CONVULSION
     Dosage: STRENGTH: 200MG XR  1 PILL  DAILY  DAILY ORAL
     Route: 048
     Dates: start: 20130723, end: 20130818
  2. CARBATROL [Concomitant]

REACTIONS (2)
  - Convulsion [None]
  - Product substitution issue [None]
